FAERS Safety Report 8778248 (Version 2)
Quarter: 2012Q4

REPORT INFORMATION
  Report Type: 
  Country: US (occurrence: US)
  Receive Date: 20120912
  Receipt Date: 20121107
  Transmission Date: 20130627
  Serious: No
  Sender: FDA-Public Use
  Company Number: US-ASTRAZENECA-2012SE60915

PATIENT
  Sex: Female
  Weight: 68 kg

DRUGS (3)
  1. CRESTOR [Suspect]
     Route: 048
     Dates: start: 20120722, end: 20120817
  2. CRESTOR [Suspect]
     Route: 048
     Dates: start: 201205
  3. COQ10 [Concomitant]

REACTIONS (6)
  - Vision blurred [Recovering/Resolving]
  - Contusion [Unknown]
  - Pain [Unknown]
  - Gait disturbance [Unknown]
  - Fatigue [Recovering/Resolving]
  - Myalgia [Recovering/Resolving]
